FAERS Safety Report 11872341 (Version 1)
Quarter: 2015Q4

REPORT INFORMATION
  Report Type: Spontaneous
  Country: FR (occurrence: FR)
  Receive Date: 20151228
  Receipt Date: 20151228
  Transmission Date: 20160305
  Serious: Yes (Hospitalization)
  Sender: FDA-Public Use
  Company Number: FR-SA-2015SA215086

PATIENT
  Age: 75 Year
  Sex: Female

DRUGS (21)
  1. SPIRONOLACTONE. [Interacting]
     Active Substance: SPIRONOLACTONE
     Route: 048
  2. DISCOTRINE [Concomitant]
     Active Substance: NITROGLYCERIN
     Dosage: 5 MG/24 H, TRANSDERMAL SYSTEM
  3. CRESTOR [Concomitant]
     Active Substance: ROSUVASTATIN CALCIUM
     Dosage: 20 MG, FILM-COATED TABLET
  4. ESOMEPRAZOLE [Concomitant]
     Active Substance: ESOMEPRAZOLE
  5. XALACOM [Concomitant]
     Active Substance: LATANOPROST\TIMOLOL MALEATE
     Dosage: XALACOM, EYE DROPS IN SOLUTION
  6. NOVORAPID [Concomitant]
     Active Substance: INSULIN ASPART
  7. LYRICA [Concomitant]
     Active Substance: PREGABALIN
  8. LEXOMIL [Concomitant]
     Active Substance: BROMAZEPAM
  9. CODOLIPRANE [Concomitant]
     Active Substance: ACETAMINOPHEN\CODEINE PHOSPHATE
  10. AZARGA [Concomitant]
     Active Substance: BRINZOLAMIDE\TIMOLOL MALEATE
     Dosage: AZARGA 10 MG/ML + 5 MG/ML, EYE DROPS IN SUSPENSION
  11. DIFFU K [Suspect]
     Active Substance: POTASSIUM CHLORIDE
     Indication: HYPOKALAEMIA
     Route: 048
  12. LANTUS [Concomitant]
     Active Substance: INSULIN GLARGINE
  13. PREVISCAN [Concomitant]
     Active Substance: FLUINDIONE
     Dosage: PREVISCAN 20 MG, TABLET
  14. RAMIPRIL. [Concomitant]
     Active Substance: RAMIPRIL
  15. ISOPTINE [Concomitant]
     Active Substance: VERAPAMIL HYDROCHLORIDE
  16. IKERVIS [Concomitant]
     Dosage: IKERVIS 1 MG/ML, EYE DROPS IN EMULSION
  17. LEVOTHYROX [Concomitant]
     Active Substance: LEVOTHYROXINE
  18. METEOSPASMYL [Concomitant]
     Active Substance: ALVERINE CITRATE\DIMETHICONE
  19. LASILIX [Interacting]
     Active Substance: FUROSEMIDE
     Route: 048
  20. DOLIPRANE [Concomitant]
     Active Substance: ACETAMINOPHEN
  21. ONEALFA [Concomitant]
     Active Substance: ALFACALCIDOL

REACTIONS (5)
  - Blood creatinine increased [Recovered/Resolved]
  - Hyponatraemia [Recovered/Resolved]
  - Overdose [Unknown]
  - Hyperkalaemia [Recovered/Resolved]
  - Drug interaction [Unknown]

NARRATIVE: CASE EVENT DATE: 20150807
